FAERS Safety Report 16835275 (Version 1)
Quarter: 2019Q3

REPORT INFORMATION
  Report Type: Spontaneous
  Country: US (occurrence: US)
  Receive Date: 20190920
  Receipt Date: 20190920
  Transmission Date: 20191005
  Serious: Yes (Other)
  Sender: FDA-Public Use
  Company Number: US-NOVOPROD-685383

PATIENT
  Age: 65 Year
  Sex: Male

DRUGS (2)
  1. TRESIBA [Suspect]
     Active Substance: INSULIN DEGLUDEC
     Indication: DIABETES MELLITUS
     Dosage: 40 IU, QD
     Route: 058
  2. NOVOLOG [Suspect]
     Active Substance: INSULIN ASPART
     Indication: DIABETES MELLITUS
     Dosage: 6 IU TID (MORNING, AFTERNOON, AND DINNER)
     Route: 058

REACTIONS (5)
  - Haemorrhage [Unknown]
  - Neuropathy peripheral [Unknown]
  - Blood glucose increased [Recovering/Resolving]
  - Skin injury [Unknown]
  - Ill-defined disorder [Unknown]
